FAERS Safety Report 26166480 (Version 1)
Quarter: 2025Q4

REPORT INFORMATION
  Report Type: Spontaneous
  Country: CN (occurrence: CN)
  Receive Date: 20251217
  Receipt Date: 20251217
  Transmission Date: 20260118
  Serious: Yes (Other)
  Sender: ACCORD
  Company Number: CN-MLMSERVICE-20251128-PI730763-00249-2

PATIENT
  Age: 44 Year
  Sex: Male

DRUGS (10)
  1. DOCETAXEL [Suspect]
     Active Substance: DOCETAXEL
     Indication: Adenocarcinoma gastric stage IV
     Dosage: Q2W, 2 CYCLIC
     Dates: start: 202305, end: 202306
  2. FLUOROURACIL [Suspect]
     Active Substance: FLUOROURACIL
     Indication: Adenocarcinoma gastric stage IV
     Dosage: Q2W, 2 CYCLIC
     Dates: start: 202305, end: 202306
  3. OXALIPLATIN [Suspect]
     Active Substance: OXALIPLATIN
     Indication: Adenocarcinoma gastric stage IV
     Dosage: Q2W, 2 CYCLIC
     Dates: start: 202305, end: 202306
  4. LEUCOVORIN [Suspect]
     Active Substance: LEUCOVORIN\LEUCOVORIN CALCIUM
     Indication: Adenocarcinoma gastric stage IV
     Dosage: Q2W, 2 CYCLIC
     Dates: start: 202305, end: 202306
  5. SINTILIMAB [Suspect]
     Active Substance: SINTILIMAB
     Indication: Adenocarcinoma gastric stage IV
     Dosage: DAY 1, 2 CYCLIC
     Dates: start: 20230529
  6. DOCETAXEL [Suspect]
     Active Substance: DOCETAXEL
     Indication: Metastases to liver
     Dosage: Q2W, 2 CYCLIC
     Dates: start: 202305, end: 202306
  7. SINTILIMAB [Suspect]
     Active Substance: SINTILIMAB
     Indication: Metastases to liver
     Dosage: DAY 1, 2 CYCLIC
     Dates: start: 20230529
  8. LEUCOVORIN [Suspect]
     Active Substance: LEUCOVORIN\LEUCOVORIN CALCIUM
     Indication: Metastases to liver
     Dosage: Q2W, 2 CYCLIC
     Dates: start: 202305, end: 202306
  9. OXALIPLATIN [Suspect]
     Active Substance: OXALIPLATIN
     Indication: Metastases to liver
     Dosage: Q2W, 2 CYCLIC
     Dates: start: 202305, end: 202306
  10. FLUOROURACIL [Suspect]
     Active Substance: FLUOROURACIL
     Indication: Metastases to liver
     Dosage: Q2W, 2 CYCLIC
     Dates: start: 202305, end: 202306

REACTIONS (2)
  - Myelosuppression [Unknown]
  - Pyrexia [Unknown]

NARRATIVE: CASE EVENT DATE: 20230101
